FAERS Safety Report 10762952 (Version 1)
Quarter: 2015Q1

REPORT INFORMATION
  Report Type: Spontaneous
  Country: HU (occurrence: HU)
  Receive Date: 20150204
  Receipt Date: 20150204
  Transmission Date: 20150721
  Serious: Yes (Other)
  Sender: FDA-Public Use
  Company Number: HU-ACTAVIS-2015-01134

PATIENT
  Age: 68 Year
  Sex: Male

DRUGS (5)
  1. SILDENAFIL. [Interacting]
     Active Substance: SILDENAFIL
     Indication: ERECTILE DYSFUNCTION
     Dosage: ONE OR TWO TABLETS A MONTH
     Route: 065
  2. BISOBLOCK [Suspect]
     Active Substance: BISOPROLOL FUMARATE
     Indication: BLOOD PRESSURE
     Dosage: 2.5 MG, DAILY
     Route: 065
  3. ALFUZOSIN SANDOZ [Interacting]
     Active Substance: ALFUZOSIN
     Indication: DYSURIA
     Dosage: 5 MG, DAILY
     Route: 065
  4. NARVA [Interacting]
     Active Substance: INDAPAMIDE
     Indication: BLOOD PRESSURE
     Dosage: 1.5 MG, DAILY
     Route: 065
  5. IRABEL [Interacting]
     Active Substance: IRBESARTAN
     Indication: BLOOD PRESSURE
     Dosage: 150 MG, DAILY
     Route: 065

REACTIONS (3)
  - Blood pressure decreased [Unknown]
  - Erectile dysfunction [Unknown]
  - Drug interaction [Unknown]
